FAERS Safety Report 13748988 (Version 4)
Quarter: 2017Q3

REPORT INFORMATION
  Report Type: Spontaneous
  Country: US (occurrence: US)
  Receive Date: 20170713
  Receipt Date: 20170830
  Transmission Date: 20171127
  Serious: No
  Sender: FDA-Public Use
  Company Number: US-PFIZER INC-2017302051

PATIENT
  Age: 88 Year
  Sex: Female
  Weight: 55 kg

DRUGS (4)
  1. FLECTOR [Suspect]
     Active Substance: DICLOFENAC EPOLAMINE
     Indication: MUSCULOSKELETAL CHEST PAIN
     Dosage: 1 DF, 2X/DAY, (IN THE MORNING AND IN THE EVENING)
     Route: 062
     Dates: start: 20170615, end: 201706
  2. FLECTOR [Suspect]
     Active Substance: DICLOFENAC EPOLAMINE
     Indication: FALL
     Dosage: 1 PATCH, UNK
     Route: 062
     Dates: start: 20170614, end: 20170614
  3. IBUPROFEN. [Concomitant]
     Active Substance: IBUPROFEN
     Dosage: UNK, 1X/DAY
  4. FLECTOR [Suspect]
     Active Substance: DICLOFENAC EPOLAMINE
     Dosage: 1 DF, 2X/DAY
     Route: 062
     Dates: start: 20170706

REACTIONS (5)
  - Drug effect incomplete [Not Recovered/Not Resolved]
  - Depressed mood [Unknown]
  - Hypophagia [Unknown]
  - Nausea [Unknown]
  - Weight decreased [Unknown]

NARRATIVE: CASE EVENT DATE: 2017
